FAERS Safety Report 7576497-5 (Version None)
Quarter: 2011Q2

REPORT INFORMATION
  Report Type: 
  Country: None (occurrence: None)
  Receive Date: 20110628
  Receipt Date: 20110622
  Transmission Date: 20111010
  Serious: Yes (Other)
  Sender: FDA-Public Use
  Company Number: US-AMGEN-USASP2011022548

PATIENT
  Sex: Male

DRUGS (2)
  1. CORTICOSTEROIDS [Concomitant]
     Dosage: UNK
     Dates: start: 20100224
  2. NPLATE [Suspect]
     Indication: IDIOPATHIC THROMBOCYTOPENIC PURPURA
     Dates: start: 20100826

REACTIONS (1)
  - ANAEMIA [None]
